FAERS Safety Report 7638887-1 (Version None)
Quarter: 2011Q3

REPORT INFORMATION
  Report Type: 
  Country: None (occurrence: None)
  Receive Date: 20110721
  Receipt Date: 20110718
  Transmission Date: 20111222
  Serious: Yes (Death, Hospitalization)
  Sender: FDA-Public Use
  Company Number: 2011SP019476

PATIENT
  Age: 55 Year
  Sex: Male
  Weight: 58.96 kg

DRUGS (33)
  1. REBETOL [Suspect]
     Indication: HEPATITIS C
     Dosage: 1000 MG;QD;PO
     Route: 048
     Dates: start: 20110110, end: 20110404
  2. COMBIVENT [Concomitant]
  3. DORIBAX [Concomitant]
  4. ALDACTONE [Concomitant]
  5. ALBUTEROL SULFATE AUTOHALER [Concomitant]
  6. CATAPRES-TTS-2 [Concomitant]
  7. HEPARIN SODIUM [Concomitant]
  8. HUMULIN R/NOVOLIN R [Concomitant]
  9. XANAX [Concomitant]
  10. GLUCOSE [Concomitant]
  11. TUSSIONEX [Concomitant]
  12. NORVASC [Concomitant]
  13. PROTONIX [Concomitant]
  14. VERSED [Concomitant]
  15. GLUCAGON [Concomitant]
  16. ULTRAM [Concomitant]
  17. HEPARIN LOCK-FLUSH [Concomitant]
  18. SOLU-MEDROL [Concomitant]
  19. SODIUM CHLORIDE [Concomitant]
  20. TYLENOL-500 [Concomitant]
  21. ATROPINE SULFATE [Concomitant]
  22. NITROGLYCERIN [Concomitant]
  23. THEOPHYLLINE [Concomitant]
  24. LANTUS [Concomitant]
  25. CORDARONE [Concomitant]
  26. PRILOSEC [Concomitant]
  27. FENTANYL/NS [Concomitant]
  28. REGLAN [Concomitant]
  29. COMBIVENT [Concomitant]
  30. DEXTROSE 50% IN WATER [Concomitant]
  31. INTRON A [Suspect]
     Indication: HEPATITIS C
     Dosage: SC
     Route: 058
     Dates: start: 20110110, end: 20110314
  32. SODIUM CHLORIDE [Concomitant]
  33. DIFLUCAN [Concomitant]

REACTIONS (15)
  - INTERSTITIAL LUNG DISEASE [None]
  - PNEUMONITIS [None]
  - HYPOXIA [None]
  - HAEMOGLOBIN INCREASED [None]
  - DIZZINESS [None]
  - CONSTIPATION [None]
  - PLATELET COUNT DECREASED [None]
  - CONDITION AGGRAVATED [None]
  - PNEUMONIA [None]
  - DEHYDRATION [None]
  - BALANCE DISORDER [None]
  - RESPIRATORY DISTRESS [None]
  - GAIT DISTURBANCE [None]
  - WHITE BLOOD CELL COUNT DECREASED [None]
  - HAEMATOCRIT INCREASED [None]
